FAERS Safety Report 23275288 (Version 1)
Quarter: 2023Q4

REPORT INFORMATION
  Report Type: Spontaneous
  Country: FR (occurrence: FR)
  Receive Date: 20231208
  Receipt Date: 20231208
  Transmission Date: 20240110
  Serious: Yes (Other)
  Sender: FDA-Public Use
  Company Number: FR-AFSSAPS-TS2023001512

PATIENT
  Age: 80 Year
  Sex: Male
  Weight: 64 kg

DRUGS (1)
  1. MIRTAZAPINE [Suspect]
     Active Substance: MIRTAZAPINE
     Indication: Depression
     Dosage: 15 MILLIGRAM, ONCE A DAY
     Route: 048
     Dates: start: 20231117

REACTIONS (1)
  - Urinary retention [Recovering/Resolving]

NARRATIVE: CASE EVENT DATE: 20231119
